FAERS Safety Report 5684877-8 (Version None)
Quarter: 2008Q1

REPORT INFORMATION
  Report Type: 
  Country: None (occurrence: None)
  Receive Date: 20080328
  Receipt Date: 19960126
  Transmission Date: 20080703
  Serious: Yes (Death, Hospitalization)
  Sender: FDA-Public Use
  Company Number: JP-ROCHE-57280

PATIENT
  Age: 28 Year
  Sex: Male

DRUGS (2)
  1. DENOSINE [Suspect]
     Indication: DRUG USE FOR UNKNOWN INDICATION
     Route: 042
     Dates: start: 19950801, end: 19951028
  2. TIENAM [Concomitant]
     Dates: start: 19950923, end: 19951013

REACTIONS (4)
  - ALTERED STATE OF CONSCIOUSNESS [None]
  - CONVULSION [None]
  - DEATH [None]
  - PNEUMONIA CYTOMEGALOVIRAL [None]
